FAERS Safety Report 24748649 (Version 1)
Quarter: 2024Q4

REPORT INFORMATION
  Report Type: Other
  Country: PT (occurrence: PT)
  Receive Date: 20241218
  Receipt Date: 20241218
  Transmission Date: 20250114
  Serious: Yes (Life-Threatening, Hospitalization, Other)
  Sender: CAPLIN STERILES LIMITED
  Company Number: PT-Caplin Steriles Limited-2167353

PATIENT
  Age: 75 Year
  Sex: Female

DRUGS (3)
  1. TRANEXAMIC ACID [Suspect]
     Active Substance: TRANEXAMIC ACID
     Indication: Haemostasis
  2. POTASSIUM CHLORIDE [Concomitant]
     Active Substance: POTASSIUM CHLORIDE
  3. MIDAZOLAM [Concomitant]
     Active Substance: MIDAZOLAM

REACTIONS (4)
  - Back pain [Recovered/Resolved]
  - Wrong technique in product usage process [Unknown]
  - Myoclonus [Recovered/Resolved]
  - Anorectal discomfort [Recovered/Resolved]
